FAERS Safety Report 15143323 (Version 1)
Quarter: 2018Q3

REPORT INFORMATION
  Report Type: Not Available
  Country: US (occurrence: US)
  Receive Date: 20180713
  Receipt Date: 20180713
  Transmission Date: 20181010
  Serious: No
  Sender: FDA-Public Use
  Company Number: US-NEUROCRINE BIOSCIENCES INC.-2018NBI02038

PATIENT
  Sex: Male

DRUGS (1)
  1. INGREZZA [Suspect]
     Active Substance: VALBENAZINE
     Indication: ADVERSE DRUG REACTION
     Route: 048
     Dates: start: 201803

REACTIONS (2)
  - Eye movement disorder [Not Recovered/Not Resolved]
  - Drug effect incomplete [None]

NARRATIVE: CASE EVENT DATE: 2018
